FAERS Safety Report 5609145-1 (Version None)
Quarter: 2008Q1

REPORT INFORMATION
  Report Type: 
  Country: None (occurrence: None)
  Receive Date: 20080130
  Receipt Date: 20080130
  Transmission Date: 20080703
  Serious: No
  Sender: FDA-Public Use
  Company Number: None

PATIENT
  Age: 51 Year
  Sex: Female
  Weight: 51.2565 kg

DRUGS (2)
  1. GENTILAX, DR. MONTFORT LABRATORY [Suspect]
     Indication: METAL POISONING
     Dosage: 1 DAILY P.O.
     Route: 048
     Dates: start: 20060101, end: 20070101
  2. NATURES BOUNTY HAIR SKIN NAILS [Suspect]
     Dosage: 1 DAILY P.O.
     Route: 048
     Dates: start: 20060101, end: 20070101

REACTIONS (3)
  - ABDOMINAL SYMPTOM [None]
  - HEADACHE [None]
  - MOUTH ULCERATION [None]
